FAERS Safety Report 5927950-9 (Version None)
Quarter: 2008Q4

REPORT INFORMATION
  Report Type: 
  Country: None (occurrence: None)
  Receive Date: 20081022
  Receipt Date: 20081022
  Transmission Date: 20090506
  Serious: Yes (Death)
  Sender: FDA-Public Use
  Company Number: None

PATIENT
  Sex: Male
  Weight: 66.2252 kg

DRUGS (2)
  1. ALIMTA [Suspect]
     Indication: NON-SMALL CELL LUNG CANCER
     Dosage: 500 MG/M2 D 1 Q 21 DAYS IV
     Route: 042
     Dates: start: 20080929, end: 20080929
  2. ABRAXANE [Suspect]
     Indication: NON-SMALL CELL LUNG CANCER
     Dosage: 260MG/M2 D 1 Q 21 DAYS I.V.
     Route: 042
     Dates: start: 20080929, end: 20080929

REACTIONS (1)
  - DEATH [None]
